FAERS Safety Report 11200092 (Version 1)
Quarter: 2015Q2

REPORT INFORMATION
  Report Type: Spontaneous
  Country: JP (occurrence: JP)
  Receive Date: 20150618
  Receipt Date: 20150618
  Transmission Date: 20150821
  Serious: Yes (Other)
  Sender: FDA-Public Use
  Company Number: JP-GUERBET LLC-1040037

PATIENT
  Age: 24 Year
  Sex: Male

DRUGS (1)
  1. DOTAREM [Suspect]
     Active Substance: GADOTERATE MEGLUMINE
     Indication: NUCLEAR MAGNETIC RESONANCE IMAGING
     Dates: start: 20150304, end: 20150304

REACTIONS (7)
  - Vomiting [Recovering/Resolving]
  - Pruritus [Recovering/Resolving]
  - Oropharyngeal discomfort [Recovering/Resolving]
  - Rash [Recovering/Resolving]
  - Urticaria [Not Recovered/Not Resolved]
  - Cough [Recovering/Resolving]
  - Nausea [Recovering/Resolving]

NARRATIVE: CASE EVENT DATE: 20150304
